FAERS Safety Report 8480342-3 (Version None)
Quarter: 2012Q2

REPORT INFORMATION
  Report Type: 
  Country: None (occurrence: None)
  Receive Date: 20120630
  Receipt Date: 20120620
  Transmission Date: 20120825
  Serious: Yes (Death)
  Sender: FDA-Public Use
  Company Number: DE-TEVA-344985GER

PATIENT
  Sex: Female
  Weight: 47 kg

DRUGS (7)
  1. DEXAMETHASONE [Concomitant]
     Dosage: 4 MILLIGRAM;
     Dates: start: 20120328, end: 20120612
  2. DOXORUBICIN HCL [Suspect]
     Indication: BREAST CANCER
     Route: 042
     Dates: start: 20120328, end: 20120619
  3. TRASTUZUMAB [Suspect]
     Indication: BREAST CANCER
     Route: 042
     Dates: start: 20120327, end: 20120619
  4. LAPATINIB [Suspect]
     Indication: BREAST CANCER
     Dosage: 500 MILLIGRAM;
     Route: 048
     Dates: start: 20120328
  5. RANITIDINE [Concomitant]
     Dosage: 5 ML;
     Dates: start: 20120328, end: 20120612
  6. DIMETINDENE [Concomitant]
     Dates: start: 20120328, end: 20120612
  7. PACLITAXEL [Suspect]
     Indication: BREAST CANCER
     Route: 042
     Dates: start: 20120328, end: 20120619

REACTIONS (1)
  - CARDIAC ARREST [None]
